FAERS Safety Report 8894491 (Version 1)
Quarter: 2012Q4

REPORT INFORMATION
  Report Type: 
  Country: US (occurrence: US)
  Receive Date: 20121108
  Receipt Date: 20121108
  Transmission Date: 20130627
  Serious: No
  Sender: FDA-Public Use
  Company Number: US-B.I. PHARMACEUTICALS,INC./RIDGEFIELD-2012-BP-27235BP

PATIENT
  Age: 81 Year
  Sex: Female
  Weight: 67 kg

DRUGS (3)
  1. PRADAXA [Suspect]
     Indication: ATRIAL FIBRILLATION
     Dosage: 300 mg
     Route: 048
     Dates: start: 201210
  2. INDAPAMIDE [Concomitant]
     Indication: SWELLING
     Dosage: 2.5 mg
     Route: 048
     Dates: start: 2009
  3. ICLITIAZEM [Concomitant]
     Indication: CARDIAC DISORDER
     Dosage: 240 mg
     Route: 048
     Dates: start: 20121018

REACTIONS (4)
  - Gingival swelling [Not Recovered/Not Resolved]
  - Tooth fracture [Not Recovered/Not Resolved]
  - Gingival pain [Not Recovered/Not Resolved]
  - Gingival erythema [Not Recovered/Not Resolved]
